FAERS Safety Report 4307159-5 (Version None)
Quarter: 2004Q1

REPORT INFORMATION
  Report Type: 
  Country: None (occurrence: None)
  Receive Date: 20040225
  Receipt Date: 20040213
  Transmission Date: 20041129
  Serious: Yes (Hospitalization)
  Sender: FDA-Public Use
  Company Number: 04P-056-0250319-00

PATIENT
  Age: 71 Year
  Sex: Female

DRUGS (4)
  1. DEPAKINE CHRONO TABLETS (SODIUM VALPROATE)(SODIUM VALPROATE) (SODIUM V [Suspect]
     Indication: EPILEPSY
     Dosage: 1000 MG, 1 IN 1 D, ORAL
     Route: 048
  2. NIFEDIPINE [Concomitant]
  3. HALOPERIDOL [Concomitant]
  4. PIRACETAM [Concomitant]

REACTIONS (8)
  - AORTIC BRUIT [None]
  - CONVULSION [None]
  - DEPRESSED LEVEL OF CONSCIOUSNESS [None]
  - HYPOKALAEMIA [None]
  - HYPONATRAEMIA [None]
  - PYREXIA [None]
  - URINARY TRACT INFECTION [None]
  - WATER INTOXICATION [None]
